FAERS Safety Report 13544598 (Version 1)
Quarter: 2017Q2

REPORT INFORMATION
  Report Type: Spontaneous
  Country: US (occurrence: US)
  Receive Date: 20170515
  Receipt Date: 20170515
  Transmission Date: 20170830
  Serious: Yes (Other)
  Sender: FDA-Public Use
  Company Number: US-BAYER-2017-089278

PATIENT
  Age: 56 Year
  Sex: Male

DRUGS (2)
  1. COUMADIN [Interacting]
     Active Substance: WARFARIN SODIUM
  2. ACETYLSALICYLIC ACID({=100 MG) [Suspect]
     Active Substance: ASPIRIN

REACTIONS (4)
  - Drug interaction [None]
  - Drug administration error [None]
  - Haemoptysis [None]
  - Pulmonary alveolar haemorrhage [None]
